FAERS Safety Report 20193685 (Version 1)
Quarter: 2021Q4

REPORT INFORMATION
  Report Type: Spontaneous
  Country: US (occurrence: US)
  Receive Date: 20211216
  Receipt Date: 20211216
  Transmission Date: 20220303
  Serious: No
  Sender: FDA-Public Use
  Company Number: US-REGENERON PHARMACEUTICALS, INC.-2021-44468

PATIENT

DRUGS (1)
  1. EYLEA [Suspect]
     Active Substance: AFLIBERCEPT
     Indication: Product used for unknown indication
     Dosage: UNK
     Route: 031
     Dates: start: 20210420, end: 20210420

REACTIONS (2)
  - Visual impairment [Unknown]
  - Eye pain [Unknown]

NARRATIVE: CASE EVENT DATE: 20210401
